FAERS Safety Report 24432256 (Version 2)
Quarter: 2025Q2

REPORT INFORMATION
  Report Type: Spontaneous
  Country: US (occurrence: US)
  Receive Date: 20241014
  Receipt Date: 20250407
  Transmission Date: 20250717
  Serious: No
  Sender: NOBELPHARMA
  Company Number: US-Nobelpharma America, LLC-NPA-2024-01764

PATIENT
  Age: 22 Year
  Sex: Female

DRUGS (11)
  1. HYFTOR [Suspect]
     Active Substance: SIROLIMUS
     Indication: Angiofibroma
     Dosage: CLEANSE FACE WITH MILD CLEANSER THEN APPLY 1.25 CM TWICE A DAY TO FACIAL ANGIOFIBROMAS
     Dates: start: 20240329
  2. HYFTOR [Suspect]
     Active Substance: SIROLIMUS
     Indication: Tuberous sclerosis complex
     Dates: start: 20240208
  3. ARIPIPRAZOLE [Concomitant]
     Active Substance: ARIPIPRAZOLE
  4. ATIVAN [Concomitant]
     Active Substance: LORAZEPAM
  5. CLONIDINE [Concomitant]
     Active Substance: CLONIDINE
  6. EPIDIOLEX [Concomitant]
     Active Substance: CANNABIDIOL
  7. PROGESTERONE [Concomitant]
     Active Substance: PROGESTERONE
  8. SERTRALINE [Concomitant]
     Active Substance: SERTRALINE HYDROCHLORIDE
  9. TRAZODONE [Concomitant]
     Active Substance: TRAZODONE HYDROCHLORIDE
  10. VITAMIN D [Concomitant]
     Active Substance: VITAMIN D NOS
  11. XCOPRI [Concomitant]
     Active Substance: CENOBAMATE

REACTIONS (2)
  - Acne [Not Recovered/Not Resolved]
  - Off label use [Unknown]

NARRATIVE: CASE EVENT DATE: 20241001
